FAERS Safety Report 6370863-1 (Version None)
Quarter: 2009Q3

REPORT INFORMATION
  Report Type: 
  Country: None (occurrence: None)
  Receive Date: 20090923
  Receipt Date: 20070709
  Transmission Date: 20100115
  Serious: No
  Sender: FDA-Public Use
  Company Number: US-ASTRAZENECA-2006UW24965

PATIENT
  Age: 18371 Day
  Sex: Male
  Weight: 72.7 kg

DRUGS (14)
  1. SEROQUEL [Suspect]
     Indication: DEPRESSION
     Route: 048
     Dates: start: 20040101, end: 20060101
  2. SEROQUEL [Suspect]
     Indication: INSOMNIA
     Route: 048
     Dates: start: 20040101, end: 20060101
  3. SEROQUEL [Suspect]
     Route: 048
     Dates: start: 20040816
  4. SEROQUEL [Suspect]
     Route: 048
     Dates: start: 20040816
  5. SEROQUEL [Suspect]
     Route: 048
     Dates: start: 20070202
  6. SEROQUEL [Suspect]
     Route: 048
     Dates: start: 20070202
  7. ZYPREXA [Concomitant]
     Dates: start: 19990101, end: 20040101
  8. WELLBUTRIN [Concomitant]
     Route: 048
  9. TRAZODONE [Concomitant]
     Route: 048
  10. PRAZOSIN HCL [Concomitant]
     Dosage: 1 MG TO 5 MG
     Route: 048
  11. LANSOPRAZOLE [Concomitant]
     Route: 048
  12. TYLENOL (CAPLET) [Concomitant]
     Route: 048
  13. FLUCONAZOLE [Concomitant]
     Route: 065
  14. HYDROCODONE IBUPROFEN [Concomitant]
     Route: 048

REACTIONS (8)
  - BACK PAIN [None]
  - DEPRESSION [None]
  - DIABETES MELLITUS [None]
  - DIARRHOEA [None]
  - NECK PAIN [None]
  - PAIN IN EXTREMITY [None]
  - RASH [None]
  - SPINAL OSTEOARTHRITIS [None]
